FAERS Safety Report 8938406 (Version 1)
Quarter: 2012Q4

REPORT INFORMATION
  Report Type: Spontaneous
  Country: US (occurrence: None)
  Receive Date: 20121128
  Receipt Date: 20121128
  Transmission Date: 20130627
  Serious: Yes (Hospitalization)
  Sender: FDA-Public Use
  Company Number: None

PATIENT
  Age: 83 Year
  Sex: Male
  Weight: 59.5 kg

DRUGS (11)
  1. WARFARIN [Suspect]
     Indication: CORONARY ARTERY DISEASE
     Dosage: Chronic
5MG  QPM  PO
     Route: 048
  2. ASA [Suspect]
     Indication: CORONARY ARTERY DISEASE
     Dosage: CHRONIC
81MG  DAILY  PO
     Route: 048
  3. ALEVE [Suspect]
     Indication: SHOULDER PAIN
     Dosage: RECENT
220MG  4 TABLETS PER DAY
  4. WATER PILL [Concomitant]
  5. OMEPRAZOLE [Concomitant]
  6. ZETIA [Concomitant]
  7. MVI [Concomitant]
  8. COREG [Concomitant]
  9. ZOLOFT [Concomitant]
  10. CLONAZEPAM [Concomitant]
  11. TYLENOL [Concomitant]

REACTIONS (7)
  - Anaemia [None]
  - International normalised ratio increased [None]
  - Upper gastrointestinal haemorrhage [None]
  - Cardiac failure congestive [None]
  - Acquired oesophageal web [None]
  - Duodenal ulcer [None]
  - Diverticulum intestinal [None]
